FAERS Safety Report 24644335 (Version 1)
Quarter: 2024Q4

REPORT INFORMATION
  Report Type: Spontaneous
  Country: US (occurrence: US)
  Receive Date: 20241120
  Receipt Date: 20241120
  Transmission Date: 20250114
  Serious: No
  Sender: SANOFI AVENTIS
  Company Number: US-SA-2024SA337383

PATIENT
  Sex: Female

DRUGS (5)
  1. DUPIXENT [Suspect]
     Active Substance: DUPILUMAB
     Indication: Asthma
     Dosage: 200 MG, QOW
     Route: 058
     Dates: start: 202210
  2. LINZESS [Concomitant]
     Active Substance: LINACLOTIDE
     Dosage: UNK
  3. ERYTHROMYCIN [Concomitant]
     Active Substance: ERYTHROMYCIN
     Dosage: UNK
  4. MESALAMINE [Concomitant]
     Active Substance: MESALAMINE
     Dosage: UNK
  5. RASUVO [Concomitant]
     Active Substance: METHOTREXATE SODIUM
     Dosage: 0.4 ML

REACTIONS (6)
  - Abdominal symptom [Unknown]
  - Condition aggravated [Unknown]
  - Abdominal discomfort [Unknown]
  - Condition aggravated [Unknown]
  - Pain [Unknown]
  - Asthma [Unknown]

NARRATIVE: CASE EVENT DATE: 20241001
